FAERS Safety Report 7267024-0 (Version None)
Quarter: 2011Q1

REPORT INFORMATION
  Report Type: 
  Country: None (occurrence: None)
  Receive Date: 20110201
  Receipt Date: 20110121
  Transmission Date: 20110831
  Serious: Yes (Other)
  Sender: FDA-Public Use
  Company Number: US-BAYER-2011-007846

PATIENT
  Sex: Male

DRUGS (2)
  1. UNCODEABLE ^UNCLASSIFIABLE^ [Suspect]
     Indication: BRONCHITIS
  2. AVELOX [Suspect]
     Indication: BRONCHITIS
     Route: 048

REACTIONS (3)
  - ABDOMINAL PAIN [None]
  - PNEUMONIA [None]
  - BRONCHITIS [None]
